FAERS Safety Report 13551860 (Version 3)
Quarter: 2020Q2

REPORT INFORMATION
  Report Type: Report from Study
  Country: US (occurrence: US)
  Receive Date: 20170516
  Receipt Date: 20200522
  Transmission Date: 20200713
  Serious: No
  Sender: FDA-Public Use
  Company Number: US-JAZZ-2017-US-005903

PATIENT
  Sex: Female

DRUGS (42)
  1. XYREM [Suspect]
     Active Substance: SODIUM OXYBATE
     Dosage: 3 G, QD
     Route: 048
     Dates: start: 201612
  2. BETAMETHASONE. [Concomitant]
     Active Substance: BETAMETHASONE
  3. DILTIAZEM. [Concomitant]
     Active Substance: DILTIAZEM
  4. FOLIC ACID. [Concomitant]
     Active Substance: FOLIC ACID
  5. PREDNISONE. [Concomitant]
     Active Substance: PREDNISONE
  6. RANITIDINE. [Concomitant]
     Active Substance: RANITIDINE
  7. LORATADINE. [Concomitant]
     Active Substance: LORATADINE
  8. PROAIR HFA [Concomitant]
     Active Substance: ALBUTEROL SULFATE
  9. GABAPENTIN. [Concomitant]
     Active Substance: GABAPENTIN
  10. HCTZ [Concomitant]
     Active Substance: HYDROCHLOROTHIAZIDE
  11. HYDROCODONE/ACETAMINOPHEN [Concomitant]
     Active Substance: ACETAMINOPHEN\HYDROCODONE
  12. LISINOPRIL. [Concomitant]
     Active Substance: LISINOPRIL
  13. METHOTREXATE. [Concomitant]
     Active Substance: METHOTREXATE
  14. LASIX [Concomitant]
     Active Substance: FUROSEMIDE
  15. METHYLPREDNISOLONE. [Concomitant]
     Active Substance: METHYLPREDNISOLONE
  16. CALCIUM [Concomitant]
     Active Substance: CALCIUM
  17. BENZONATATE. [Concomitant]
     Active Substance: BENZONATATE
  18. XYREM [Suspect]
     Active Substance: SODIUM OXYBATE
     Indication: CATAPLEXY
     Dosage: DOSE ADJUSTMENT
     Route: 048
     Dates: start: 201010, end: 201612
  19. SYMBICORT [Concomitant]
     Active Substance: BUDESONIDE\FORMOTEROL FUMARATE DIHYDRATE
  20. PROVENTIL HFA [SALBUTAMOL] [Concomitant]
  21. VITAMIN D [ERGOCALCIFEROL] [Concomitant]
     Active Substance: ERGOCALCIFEROL
  22. NORCO [Concomitant]
     Active Substance: ACETAMINOPHEN\HYDROCODONE BITARTRATE
  23. ADVAIR HFA [Concomitant]
     Active Substance: FLUTICASONE PROPIONATE\SALMETEROL XINAFOATE
  24. ASPIRIN [ACETYLSALICYLIC ACID] [Concomitant]
     Active Substance: ASPIRIN
  25. MAGNESIUM OXIDE. [Concomitant]
     Active Substance: MAGNESIUM OXIDE
  26. NUVIGIL [Concomitant]
     Active Substance: ARMODAFINIL
  27. IRON [Concomitant]
     Active Substance: IRON
  28. PRILOSEC [Concomitant]
     Active Substance: OMEPRAZOLE MAGNESIUM
  29. VITAMIN B12 [Concomitant]
     Active Substance: CYANOCOBALAMIN
  30. AZITHROMYCIN ANHYDROUS. [Concomitant]
     Active Substance: AZITHROMYCIN ANHYDROUS
  31. AMLODIPINE BESYLATE. [Concomitant]
     Active Substance: AMLODIPINE BESYLATE
  32. BISOPROLOL FUMARATE. [Concomitant]
     Active Substance: BISOPROLOL FUMARATE
  33. SPIRONOLACTONE. [Concomitant]
     Active Substance: SPIRONOLACTONE
  34. CALTRATE [Concomitant]
     Active Substance: CALCIUM CARBONATE
  35. XYREM [Suspect]
     Active Substance: SODIUM OXYBATE
     Dosage: 4.5 G, QD
     Route: 048
     Dates: start: 201612
  36. RITUXAN [Concomitant]
     Active Substance: RITUXIMAB
  37. ASPIR 81 [Concomitant]
     Active Substance: ASPIRIN
  38. ELIQUIS [Concomitant]
     Active Substance: APIXABAN
  39. LEVOFLOXACIN. [Concomitant]
     Active Substance: LEVOFLOXACIN
  40. XYREM [Suspect]
     Active Substance: SODIUM OXYBATE
     Indication: NARCOLEPSY
     Dosage: 2.25 G, BID
     Route: 048
     Dates: start: 201009, end: 201010
  41. INCRUSE ELLIPTA [Concomitant]
     Active Substance: UMECLIDINIUM BROMIDE
  42. LOMOTIL [LOPERAMIDE HYDROCHLORIDE] [Concomitant]

REACTIONS (1)
  - Cough [Not Recovered/Not Resolved]

NARRATIVE: CASE EVENT DATE: 2017
